FAERS Safety Report 6199778-9 (Version None)
Quarter: 2009Q2

REPORT INFORMATION
  Report Type: 
  Country: None (occurrence: None)
  Receive Date: 20090522
  Receipt Date: 20090514
  Transmission Date: 20091009
  Serious: Yes (Hospitalization, Other)
  Sender: FDA-Public Use
  Company Number: US-JNJFOC-20070804725

PATIENT
  Age: 60 Year
  Sex: Male

DRUGS (5)
  1. REMICADE [Suspect]
     Dosage: 5TH DOSE ON 6-OCT-2005
     Route: 042
  2. REMICADE [Suspect]
     Dosage: 2 INFUSIONS ON UNSPECIFIED DATES
     Route: 042
  3. REMICADE [Suspect]
     Route: 042
  4. REMICADE [Suspect]
     Indication: COLITIS ULCERATIVE
     Route: 042
  5. BENTYL [Concomitant]
     Indication: COLITIS ULCERATIVE

REACTIONS (1)
  - HISTOPLASMOSIS [None]
